FAERS Safety Report 4914905-6 (Version None)
Quarter: 2006Q1

REPORT INFORMATION
  Report Type: 
  Country: None (occurrence: None)
  Receive Date: 20060217
  Receipt Date: 20060126
  Transmission Date: 20060701
  Serious: Yes (Hospitalization)
  Sender: FDA-Public Use
  Company Number: 2006CG00191

PATIENT
  Age: 46 Year
  Sex: Female

DRUGS (10)
  1. OMEPRAZOLE [Suspect]
     Indication: GASTROINTESTINAL ULCER
     Route: 048
     Dates: start: 20050520, end: 20050620
  2. OMEPRAZOLE [Suspect]
     Route: 048
     Dates: start: 20050621, end: 20051207
  3. AVLOCARDYL [Concomitant]
     Route: 048
  4. RIFADIN [Concomitant]
     Indication: INFECTIVE SPONDYLITIS
     Route: 048
     Dates: start: 20050712, end: 20050715
  5. STILNOX [Concomitant]
  6. SPECIAFOLDINE [Concomitant]
  7. OFLOCET [Concomitant]
     Indication: INFECTIVE SPONDYLITIS
     Route: 048
     Dates: start: 20050712, end: 20051001
  8. SKENAN [Concomitant]
  9. FORLAX [Concomitant]
  10. BUMETANIDE [Concomitant]
     Dates: end: 20051125

REACTIONS (17)
  - CHOLESTASIS [None]
  - DERMATITIS EXFOLIATIVE [None]
  - DEVICE RELATED INFECTION [None]
  - DRUG HYPERSENSITIVITY [None]
  - ECZEMA [None]
  - ENDOMETRIOSIS [None]
  - ENTEROBACTER INFECTION [None]
  - ERYTHEMA [None]
  - HYPOTENSION [None]
  - MECHANICAL COMPLICATION OF IMPLANT [None]
  - MUCOUS MEMBRANE DISORDER [None]
  - NEUTROPENIA [None]
  - PARAKERATOSIS [None]
  - PSEUDOMONAS INFECTION [None]
  - PURPURA [None]
  - PYREXIA [None]
  - RENAL FAILURE ACUTE [None]
